FAERS Safety Report 24616791 (Version 1)
Quarter: 2024Q4

REPORT INFORMATION
  Report Type: Spontaneous
  Country: US (occurrence: US)
  Receive Date: 20241114
  Receipt Date: 20241114
  Transmission Date: 20250115
  Serious: No
  Sender: OTSUKA
  Company Number: US-OTSUKA-2024_009174

PATIENT

DRUGS (6)
  1. NUEDEXTA [Interacting]
     Active Substance: DEXTROMETHORPHAN HYDROBROMIDE\QUINIDINE SULFATE
     Indication: Dementia
     Dosage: UNK (20-10MG)
     Route: 065
  2. NUEDEXTA [Interacting]
     Active Substance: DEXTROMETHORPHAN HYDROBROMIDE\QUINIDINE SULFATE
     Indication: Affect lability
  3. ARICEPT [Interacting]
     Active Substance: DONEPEZIL HYDROCHLORIDE
     Indication: Dementia
     Dosage: UNK
     Route: 065
  4. ARICEPT [Interacting]
     Active Substance: DONEPEZIL HYDROCHLORIDE
     Indication: Affect lability
  5. NAMENDA [Suspect]
     Active Substance: MEMANTINE HYDROCHLORIDE
     Indication: Dementia
     Dosage: UNK
     Route: 065
  6. NAMENDA [Suspect]
     Active Substance: MEMANTINE HYDROCHLORIDE
     Indication: Affect lability

REACTIONS (2)
  - Agitation [Unknown]
  - Drug interaction [Unknown]
